FAERS Safety Report 10785735 (Version 2)
Quarter: 2015Q1

REPORT INFORMATION
  Report Type: Spontaneous
  Country: US (occurrence: US)
  Receive Date: 20150211
  Receipt Date: 20150313
  Transmission Date: 20150721
  Serious: Yes (Hospitalization)
  Sender: FDA-Public Use
  Company Number: US-009507513-1502USA003862

PATIENT
  Age: 52 Year
  Sex: Female

DRUGS (10)
  1. FUROSEMIDE. [Concomitant]
     Active Substance: FUROSEMIDE
     Dosage: UNK
  2. VENLAFAXINE HYDROCHLORIDE. [Concomitant]
     Active Substance: VENLAFAXINE HYDROCHLORIDE
     Dosage: UNK
  3. ELAVIL [Suspect]
     Active Substance: AMITRIPTYLINE HYDROCHLORIDE
     Indication: DEPRESSION
     Dosage: UNK
  4. ZOLPIDEM TARTRATE. [Concomitant]
     Active Substance: ZOLPIDEM TARTRATE
     Dosage: UNK
  5. IBUPROFEN. [Concomitant]
     Active Substance: IBUPROFEN
     Dosage: UNK
  6. ACETAMINOPHEN (+) HYDROCODONE BITARTRATE [Concomitant]
     Active Substance: ACETAMINOPHEN\HYDROCODONE
     Dosage: UNK
  7. ARIPIPRAZOLE. [Concomitant]
     Active Substance: ARIPIPRAZOLE
     Dosage: UNK
  8. HYDROCHLOROTHIAZIDE. [Concomitant]
     Active Substance: HYDROCHLOROTHIAZIDE
     Dosage: UNK
  9. METOPROLOL [Concomitant]
     Active Substance: METOPROLOL
     Dosage: UNK
  10. K-DUR [Concomitant]
     Active Substance: POTASSIUM CHLORIDE
     Dosage: UNK

REACTIONS (2)
  - Presyncope [Recovered/Resolved]
  - Atrioventricular block second degree [Recovered/Resolved]
